FAERS Safety Report 11836376 (Version 3)
Quarter: 2016Q1

REPORT INFORMATION
  Report Type: Spontaneous
  Country: ES (occurrence: ES)
  Receive Date: 20151215
  Receipt Date: 20160115
  Transmission Date: 20160525
  Serious: Yes (Other)
  Sender: FDA-Public Use
  Company Number: ES-BEH-2015056575

PATIENT
  Sex: Male
  Weight: 60 kg

DRUGS (5)
  1. HAEMATE P [Suspect]
     Active Substance: ANTIHEMOPHILIC FACTOR HUMAN
     Indication: PRODUCT USED FOR UNKNOWN INDICATION
     Route: 042
  2. HAEMATE P [Suspect]
     Active Substance: ANTIHEMOPHILIC FACTOR HUMAN
     Dosage: ?, OTHER CENTER/HOSPITAL
  3. HAEMATE P [Suspect]
     Active Substance: ANTIHEMOPHILIC FACTOR HUMAN
     Dosage: SINCE ??-???-2001
  4. HAEMATE P [Suspect]
     Active Substance: ANTIHEMOPHILIC FACTOR HUMAN
     Dosage: 1500 IU/48 H; TOTAL EXPOSURE: 1400
     Dates: start: 20110602
  5. HAEMATE P [Suspect]
     Active Substance: ANTIHEMOPHILIC FACTOR HUMAN
     Dosage: 6000 IU/24H
     Dates: start: 20151222

REACTIONS (4)
  - Haemorrhage [Recovering/Resolving]
  - Drug ineffective [Recovering/Resolving]
  - Muscle haemorrhage [Recovering/Resolving]
  - Factor VIII inhibition [Recovering/Resolving]
